FAERS Safety Report 25627049 (Version 1)
Quarter: 2025Q3

REPORT INFORMATION
  Report Type: Spontaneous
  Country: US (occurrence: US)
  Receive Date: 20250731
  Receipt Date: 20250731
  Transmission Date: 20251021
  Serious: Yes (Other)
  Sender: BAYER HEALTHCARE PHARMACEUTICALS INC.
  Company Number: US-BAYER-2025A101763

PATIENT

DRUGS (1)
  1. GADOBUTROL [Suspect]
     Active Substance: GADOBUTROL

REACTIONS (4)
  - Loss of consciousness [None]
  - Presyncope [None]
  - Vomiting [None]
  - Hyperhidrosis [None]
